FAERS Safety Report 7474768-4 (Version None)
Quarter: 2011Q2

REPORT INFORMATION
  Report Type: 
  Country: None (occurrence: None)
  Receive Date: 20110512
  Receipt Date: 20110506
  Transmission Date: 20111010
  Serious: Yes (Life-Threatening, Hospitalization, Other)
  Sender: FDA-Public Use
  Company Number: FR-JNJFOC-20110502809

PATIENT
  Age: 48 Year
  Sex: Male

DRUGS (7)
  1. METHADONE HCL [Concomitant]
     Route: 065
  2. REVATIO [Concomitant]
     Route: 065
  3. MICONAZOLE [Suspect]
     Route: 002
     Dates: start: 20110201, end: 20110301
  4. MICONAZOLE [Suspect]
     Indication: CANDIDIASIS
     Route: 002
     Dates: start: 20110201, end: 20110301
  5. NORVIR [Concomitant]
     Route: 065
  6. TRUVADA [Concomitant]
     Route: 065
  7. PREVISCAN (FLUINDIONE) [Interacting]
     Indication: PRODUCT USED FOR UNKNOWN INDICATION
     Route: 048
     Dates: end: 20110322

REACTIONS (4)
  - DRUG INTERACTION [None]
  - PERICARDIAL EFFUSION [None]
  - CHEST DISCOMFORT [None]
  - INTERNATIONAL NORMALISED RATIO INCREASED [None]
